FAERS Safety Report 8175515-3 (Version None)
Quarter: 2012Q1

REPORT INFORMATION
  Report Type: 
  Country: None (occurrence: None)
  Receive Date: 20120229
  Receipt Date: 20120227
  Transmission Date: 20120608
  Serious: Yes (Hospitalization)
  Sender: FDA-Public Use
  Company Number: US-MERCK-1103USA01244

PATIENT
  Age: 74 Year
  Sex: Female

DRUGS (9)
  1. VITAMIN D (UNSPECIFIED) [Concomitant]
     Route: 065
  2. FOSAMAX [Suspect]
     Indication: OSTEOPOROSIS PROPHYLAXIS
     Route: 048
     Dates: start: 20020617, end: 20100501
  3. VITAMINS (UNSPECIFIED) [Concomitant]
     Route: 065
  4. CALCIUM (UNSPECIFIED) [Concomitant]
     Route: 065
  5. LIPITOR [Concomitant]
     Route: 065
  6. HYDROCHLOROTHIAZIDE [Concomitant]
     Route: 065
  7. ALENDRONATE SODIUM [Suspect]
     Route: 048
     Dates: start: 20080714, end: 20100223
  8. FOSAMAX [Suspect]
     Indication: OSTEOPOROSIS
     Route: 048
     Dates: start: 20020617, end: 20100501
  9. SYNTHROID [Concomitant]
     Route: 065

REACTIONS (31)
  - AORTIC CALCIFICATION [None]
  - FALL [None]
  - SPINAL OSTEOARTHRITIS [None]
  - CATARACT [None]
  - BURSITIS [None]
  - ARTERIOSCLEROSIS [None]
  - FAECALOMA [None]
  - LEUKOCYTOSIS [None]
  - DEHYDRATION [None]
  - URINARY RETENTION [None]
  - RENAL FAILURE ACUTE [None]
  - NAUSEA [None]
  - LUNG DISORDER [None]
  - HYDRONEPHROSIS [None]
  - IMPAIRED HEALING [None]
  - ATELECTASIS [None]
  - SYSTEMIC INFLAMMATORY RESPONSE SYNDROME [None]
  - RADIUS FRACTURE [None]
  - HEPATIC STEATOSIS [None]
  - DIABETIC RETINOPATHY [None]
  - CARDIOMEGALY [None]
  - PYREXIA [None]
  - VOMITING [None]
  - LUNG INFILTRATION [None]
  - BLOOD CHOLESTEROL INCREASED [None]
  - HYPOKALAEMIA [None]
  - DIABETES MELLITUS [None]
  - FEMUR FRACTURE [None]
  - URINARY TRACT INFECTION [None]
  - INTERSTITIAL LUNG DISEASE [None]
  - HYPERTENSION [None]
